FAERS Safety Report 10312170 (Version 2)
Quarter: 2014Q3

REPORT INFORMATION
  Report Type: Spontaneous
  Country: BR (occurrence: BR)
  Receive Date: 20140718
  Receipt Date: 20140718
  Transmission Date: 20150326
  Serious: Yes (Other)
  Sender: FDA-Public Use
  Company Number: BR-AMGEN INC.-BRASP2014046793

PATIENT
  Age: 40 Year
  Sex: Female
  Weight: 62 kg

DRUGS (2)
  1. ENBREL [Suspect]
     Active Substance: ETANERCEPT
     Indication: RHEUMATOID ARTHRITIS
     Dosage: 50 MG, WEEKLY
     Route: 058
     Dates: start: 201406
  2. METHOTREXATE [Concomitant]
     Active Substance: METHOTREXATE
     Dosage: UNK

REACTIONS (7)
  - Pyrexia [Not Recovered/Not Resolved]
  - Dysphagia [Unknown]
  - Pain [Not Recovered/Not Resolved]
  - Immunosuppression [Unknown]
  - Oropharyngeal pain [Not Recovered/Not Resolved]
  - Conjunctivitis [Unknown]
  - Throat tightness [Unknown]

NARRATIVE: CASE EVENT DATE: 201406
